FAERS Safety Report 4978687-4 (Version None)
Quarter: 2006Q2

REPORT INFORMATION
  Report Type: 
  Country: None (occurrence: None)
  Receive Date: 20060414
  Receipt Date: 20060407
  Transmission Date: 20061013
  Serious: Yes (Other)
  Sender: FDA-Public Use
  Company Number: 007112

PATIENT
  Age: 8 Year
  Sex: Female

DRUGS (3)
  1. LEUCOVORIN CALCIUM (LEUCOVORIN CALCIUM) TABLET, 5 MG [Suspect]
     Indication: NON-HODGKIN'S LYMPHOMA
     Dosage: 3 TABLET, Q6HR, ORAL
     Route: 048
     Dates: start: 20060312, end: 20060313
  2. PERIDEX (CHLORHEXIDINE GLUCONATE) [Concomitant]
  3. DIFLUCAN [Concomitant]

REACTIONS (1)
  - RASH PRURITIC [None]
